FAERS Safety Report 19689232 (Version 1)
Quarter: 2021Q3

REPORT INFORMATION
  Report Type: Spontaneous
  Country: CA (occurrence: CA)
  Receive Date: 20210812
  Receipt Date: 20210812
  Transmission Date: 20211014
  Serious: Yes (Death)
  Sender: FDA-Public Use
  Company Number: CA-TEVA-2021-CA-1939592

PATIENT
  Age: 64 Year
  Sex: Female

DRUGS (3)
  1. ELAVIL [Suspect]
     Active Substance: AMITRIPTYLINE HYDROCHLORIDE
     Route: 065
  2. MORPHINE [Suspect]
     Active Substance: MORPHINE
     Route: 065
  3. CELEXA [Suspect]
     Active Substance: CITALOPRAM HYDROBROMIDE
     Route: 065

REACTIONS (7)
  - Confusional state [Fatal]
  - Pain in extremity [Fatal]
  - Pyrexia [Fatal]
  - Serotonin syndrome [Fatal]
  - Reflexes abnormal [Fatal]
  - Depressed level of consciousness [Fatal]
  - Intensive care [Fatal]
